FAERS Safety Report 6823051-6 (Version None)
Quarter: 2010Q3

REPORT INFORMATION
  Report Type: 
  Country: None (occurrence: None)
  Receive Date: 20100708
  Receipt Date: 20100705
  Transmission Date: 20110219
  Serious: Yes (Hospitalization)
  Sender: FDA-Public Use
  Company Number: B0663544A

PATIENT
  Sex: Male

DRUGS (5)
  1. ARIXTRA [Suspect]
     Route: 065
     Dates: start: 20091027, end: 20091104
  2. AMOXICILLIN SODIUM [Suspect]
     Dosage: 1G THREE TIMES PER DAY
     Route: 048
     Dates: start: 20091020, end: 20091104
  3. CIFLOX [Suspect]
     Dosage: 500MG PER DAY
     Route: 048
     Dates: start: 20091020, end: 20091104
  4. PREVISCAN [Suspect]
     Route: 048
     Dates: start: 20091102, end: 20091104
  5. FUCIDINE [Concomitant]
     Route: 061
     Dates: start: 20091103, end: 20091104

REACTIONS (7)
  - CHILLS [None]
  - DRUG HYPERSENSITIVITY [None]
  - NAUSEA [None]
  - PYREXIA [None]
  - RASH MACULAR [None]
  - RASH PRURITIC [None]
  - VOMITING [None]
